FAERS Safety Report 10176388 (Version 2)
Quarter: 2014Q2

REPORT INFORMATION
  Report Type: Spontaneous
  Country: US (occurrence: US)
  Receive Date: 20140516
  Receipt Date: 20140605
  Transmission Date: 20141212
  Serious: Yes (Other)
  Sender: FDA-Public Use
  Company Number: ALCN2014US002832

PATIENT
  Age: 92 Year
  Sex: Female
  Weight: 65.76 kg

DRUGS (9)
  1. DORZOLAMIDE,TIMOLOL [Suspect]
     Indication: GLAUCOMA
     Dosage: 1 GTT, BID
     Route: 047
     Dates: start: 2009, end: 20140502
  2. SIMVASTATIN [Concomitant]
     Indication: HYPERTENSION
     Dosage: 20 MG, QHS
     Route: 048
     Dates: start: 2004
  3. DIURETICS [Concomitant]
     Indication: HYPERTENSION
     Dosage: UNK
  4. HYDROCHLOROTHIAZIDE [Concomitant]
     Indication: HYPERTENSION
     Dosage: 25 MG, QD
     Route: 048
     Dates: start: 2004
  5. ASPIRIN [Concomitant]
     Indication: HYPERTENSION
     Dosage: 325 MG, QHS
     Route: 048
     Dates: start: 2004
  6. ASA [Concomitant]
     Indication: PROMOTION OF PERIPHERAL CIRCULATION
     Dosage: 25 MG, QHS
     Route: 048
     Dates: start: 2004
  7. NITROGLYCERIN [Concomitant]
     Indication: HYPERTENSION
     Dosage: 0.3 MG, PRN
     Route: 060
  8. MULTI VITAMIN + MINERAL [Concomitant]
     Dosage: UNK
     Dates: start: 2004
  9. VITAMIN B 12 [Concomitant]
     Indication: BLOOD COUNT ABNORMAL
     Dosage: UNK
     Route: 048
     Dates: start: 2004

REACTIONS (7)
  - Pancreatic enlargement [Not Recovered/Not Resolved]
  - Gastric dilatation [Not Recovered/Not Resolved]
  - Splenomegaly [Not Recovered/Not Resolved]
  - Blood pressure systolic decreased [Recovered/Resolved]
  - Weight decreased [Not Recovered/Not Resolved]
  - Dysphonia [Not Recovered/Not Resolved]
  - Asthenia [Not Recovered/Not Resolved]
